FAERS Safety Report 6373626-6 (Version None)
Quarter: 2009Q3

REPORT INFORMATION
  Report Type: 
  Country: None (occurrence: None)
  Receive Date: 20090924
  Receipt Date: 20090911
  Transmission Date: 20100115
  Serious: Yes (Other)
  Sender: FDA-Public Use
  Company Number: US-PFIZER INC-2009170610

PATIENT
  Sex: Female
  Weight: 96.161 kg

DRUGS (40)
  1. CHANTIX [Suspect]
     Indication: SMOKING CESSATION THERAPY
     Dosage: 1 MG, 2X/DAY
     Dates: start: 20090220
  2. CHANTIX [Suspect]
     Route: 048
     Dates: start: 20090220
  3. CHANTIX [Suspect]
     Dosage: UNK
     Dates: start: 20090213
  4. MORPHINE SULFATE [Suspect]
     Indication: PAIN
     Dosage: 15 MG, EVERY SIX HOURS
     Dates: end: 20090821
  5. DILAUDID [Suspect]
     Dosage: 4 MG, 1X/DAY
     Dates: end: 20090821
  6. RANITIDINE [Suspect]
     Indication: GASTROOESOPHAGEAL REFLUX DISEASE
     Dosage: 150 MG, UNK
     Dates: end: 20090821
  7. COMPAZINE [Suspect]
     Indication: NAUSEA
     Dosage: 10 MG, 3X/DAY
     Dates: end: 20090821
  8. DEPAKOTE ER [Suspect]
  9. FIORICET W/ CODEINE [Concomitant]
     Dosage: UNK
  10. PROTONIX [Concomitant]
     Indication: GASTROOESOPHAGEAL REFLUX DISEASE
     Dosage: 40 MG, 1X/DAY
  11. PROTONIX [Concomitant]
     Route: 048
  12. LASIX [Concomitant]
     Dosage: UNK
  13. BETHANECHOL [Concomitant]
     Indication: URINARY RETENTION
     Dosage: 25 MG, 4X/DAY
  14. PERCOCET [Concomitant]
     Dosage: UNK
  15. TRICOR [Concomitant]
     Dosage: 145 MG, 1X/DAY
  16. TRICOR [Concomitant]
  17. ZOFRAN [Concomitant]
     Indication: NAUSEA
     Dosage: UNK
  18. REGLAN [Concomitant]
     Indication: NAUSEA
     Dosage: UNK
  19. REGLAN [Concomitant]
     Indication: GASTROOESOPHAGEAL REFLUX DISEASE
     Dosage: FREQUENCY: EVERY 6 HOURS,
     Route: 048
  20. TOPAMAX [Concomitant]
     Dosage: 100 MG, 2X/DAY
  21. ZOCOR [Concomitant]
     Dosage: 20 MG, 1X/DAY
  22. SYNTHROID [Concomitant]
     Indication: HYPOTHYROIDISM
     Dosage: UNK
  23. ZOLOFT [Concomitant]
     Indication: DEPRESSION
     Dosage: 200 MG, 1X/DAY
  24. HUMALOG [Concomitant]
     Indication: DIABETES MELLITUS
     Dosage: UNK
  25. LANTUS [Concomitant]
     Indication: DIABETES MELLITUS
     Dosage: UNK
  26. KLONOPIN [Concomitant]
     Indication: BIPOLAR I DISORDER
  27. CLARITIN [Concomitant]
     Indication: SINUS DISORDER
     Dosage: UNK
  28. CIPROFLOXACIN [Concomitant]
     Dosage: UNK
  29. NEURONTIN [Concomitant]
     Indication: NEUROPATHY PERIPHERAL
     Dosage: UNK
  30. NEURONTIN [Concomitant]
     Dosage: FREQUENCY: EVERY 6 HOURS,
     Route: 048
  31. VALIUM [Concomitant]
     Indication: DEPRESSION
     Dosage: UNK
  32. VALIUM [Concomitant]
     Indication: ANXIETY
     Dosage: FREQUENCY: EVERY 6 HOURS,
     Route: 048
  33. ZYPREXA [Concomitant]
     Dosage: UNK
  34. INSULIN [Concomitant]
     Dosage: UNK
  35. LOMOTIL [Concomitant]
     Indication: DIARRHOEA
     Dosage: UNK
  36. ENALAPRIL MALEATE [Concomitant]
     Indication: HYPERTENSION
     Dosage: 5 MG, 1X/DAY
  37. ENALAPRIL MALEATE [Concomitant]
     Route: 048
  38. FIORICET [Concomitant]
     Indication: MIGRAINE
  39. CODEINE [Concomitant]
     Indication: MIGRAINE
  40. NORCO [Concomitant]
     Dosage: FREQUENCY: EVERY SIX HOURS,
     Route: 048

REACTIONS (8)
  - ACCIDENT [None]
  - BIPOLAR I DISORDER [None]
  - BLOOD GLUCOSE DECREASED [None]
  - CHEST PAIN [None]
  - DIABETES MELLITUS INADEQUATE CONTROL [None]
  - FOOT FRACTURE [None]
  - GASTROOESOPHAGEAL REFLUX DISEASE [None]
  - URINARY TRACT INFECTION [None]
